FAERS Safety Report 25705040 (Version 1)
Quarter: 2025Q3

REPORT INFORMATION
  Report Type: Spontaneous
  Country: US (occurrence: None)
  Receive Date: 20250819
  Receipt Date: 20250819
  Transmission Date: 20251021
  Serious: Yes (Life-Threatening, Hospitalization)
  Sender: FDA-CTU
  Company Number: None

PATIENT
  Age: 88 Year
  Sex: Male

DRUGS (2)
  1. APIXABAN [Suspect]
     Active Substance: APIXABAN
  2. APIXABAN [Concomitant]
     Active Substance: APIXABAN

REACTIONS (5)
  - Syncope [None]
  - Fall [None]
  - Contusion [None]
  - Haematoma [None]
  - Subarachnoid haemorrhage [None]

NARRATIVE: CASE EVENT DATE: 20250127
